FAERS Safety Report 21082646 (Version 1)
Quarter: 2022Q3

REPORT INFORMATION
  Report Type: Spontaneous
  Country: CN (occurrence: CN)
  Receive Date: 20220714
  Receipt Date: 20220714
  Transmission Date: 20221027
  Serious: Yes (Other)
  Sender: FDA-Public Use
  Company Number: None

PATIENT
  Age: 33 Year
  Sex: Female
  Weight: 57 kg

DRUGS (5)
  1. CYCLOPHOSPHAMIDE [Suspect]
     Active Substance: CYCLOPHOSPHAMIDE
     Indication: Breast cancer female
     Dosage: 900 MG, QD, (DOSAGE FORM: POWDER INJECTION), 1ST CHEMOTHERAPY, CYCLOPHOSPHAMIDE 900 MG + NS 45ML
     Route: 042
     Dates: start: 20220505, end: 20220505
  2. SODIUM CHLORIDE [Suspect]
     Active Substance: SODIUM CHLORIDE
     Indication: Medication dilution
     Dosage: 45 ML, QD, 1ST CHEMOTHERAPY, CYCLOPHOSPHAMIDE 900 MG + NS 45ML
     Route: 042
     Dates: start: 20220505, end: 20220505
  3. SODIUM CHLORIDE [Suspect]
     Active Substance: SODIUM CHLORIDE
     Dosage: 250 ML, QD, 1ST CHEMOTHERAPY, DOCETAXEL 120 MG + NS 250ML
     Route: 041
     Dates: start: 20220505, end: 20220505
  4. TAXOTERE [Suspect]
     Active Substance: DOCETAXEL
     Indication: Breast cancer female
     Dosage: 120 MG, QD, 1ST CHEMOTHERAPY, DOCETAXEL 120 MG + NS 250ML
     Route: 041
     Dates: start: 20220505, end: 20220505
  5. XIN RUI BAI [Concomitant]
     Dosage: 6 MG, SECOND DAY
     Route: 058
     Dates: start: 202205

REACTIONS (2)
  - White blood cell count decreased [Recovered/Resolved]
  - Agranulocytosis [Recovered/Resolved]

NARRATIVE: CASE EVENT DATE: 20220511
